FAERS Safety Report 5698533-3 (Version None)
Quarter: 2008Q2

REPORT INFORMATION
  Report Type: 
  Country: None (occurrence: None)
  Receive Date: 20080403
  Receipt Date: 20080326
  Transmission Date: 20081010
  Serious: Yes (Disabling)
  Sender: FDA-Public Use
  Company Number: OSCN-NO-0608S-0235

PATIENT
  Age: 42 Year
  Sex: Male

DRUGS (6)
  1. OMNISCAN [Suspect]
     Indication: RENAL ARTERY STENOSIS
     Dosage: 20 MG, SINGLE DOSE, I.V.
     Route: 042
     Dates: start: 20040312, end: 20040312
  2. CALCIUM CARBONATE (CALCICHEW) [Concomitant]
  3. FUROSEMIDE [Concomitant]
  4. MYCOPHENOLATE MOFETIL [Concomitant]
  5. EPOGEN [Concomitant]
  6. PREDNISOLONE [Concomitant]

REACTIONS (3)
  - HAEMODIALYSIS [None]
  - NEPHROGENIC SYSTEMIC FIBROSIS [None]
  - OEDEMA PERIPHERAL [None]
